FAERS Safety Report 13733980 (Version 1)
Quarter: 2017Q3

REPORT INFORMATION
  Report Type: Spontaneous
  Country: JP (occurrence: JP)
  Receive Date: 20170708
  Receipt Date: 20170708
  Transmission Date: 20171127
  Serious: Yes (Hospitalization)
  Sender: FDA-Public Use
  Company Number: JP-AMGEN-JPNSP2017103515

PATIENT
  Age: 54 Year
  Sex: Female

DRUGS (1)
  1. G-LASTA [Suspect]
     Active Substance: PEGFILGRASTIM
     Indication: PRODUCT USED FOR UNKNOWN INDICATION
     Dosage: UNK
     Route: 058
     Dates: start: 20170615, end: 20170615

REACTIONS (5)
  - Sepsis [Unknown]
  - Renal impairment [Unknown]
  - Implant site infection [Unknown]
  - Hepatic function abnormal [Unknown]
  - Splenomegaly [Unknown]
